FAERS Safety Report 8950939 (Version 1)
Quarter: 2012Q4

REPORT INFORMATION
  Report Type: 
  Country: US (occurrence: US)
  Receive Date: 20121207
  Receipt Date: 20121207
  Transmission Date: 20130627
  Serious: Yes (Other)
  Sender: FDA-Public Use
  Company Number: US-WATSON-2012-21418

PATIENT

DRUGS (3)
  1. DILACOR XR [Suspect]
     Indication: ATRIAL FLUTTER
     Dosage: 50 mg, UNK
     Route: 064
  2. FLECAINIDE [Suspect]
     Indication: ATRIAL FLUTTER
     Dosage: 50 mg, UNK
     Route: 064
  3. ENOXAPARIN [Suspect]
     Indication: ATRIAL FLUTTER
     Dosage: 1 mg/kg, UNK
     Route: 064

REACTIONS (2)
  - Foetal growth restriction [Unknown]
  - Foetal exposure during pregnancy [Unknown]
